FAERS Safety Report 8560831 (Version 2)
Quarter: 2012Q4

REPORT INFORMATION
  Report Type: Spontaneous
  Country: US (occurrence: None)
  Receive Date: 20120503
  Receipt Date: 20120911
  Transmission Date: 20130627
  Serious: Yes (Death, Life-Threatening, Hospitalization, Disabling, Other)
  Sender: FDA-Public Use
  Company Number: DSA_56338_2012

PATIENT
  Age: 58 Year
  Sex: Male

DRUGS (11)
  1. XENAZINE [Suspect]
     Indication: HUNTINGTON^S DISEASE
     Dosage: 25 MG TID ORAL
     Route: 048
     Dates: start: 20110511, end: 20120315
  2. MORPHINE [Concomitant]
  3. OXYGEN [Concomitant]
  4. VALPROIC ACID [Concomitant]
  5. ACETAMINOPHEN [Concomitant]
  6. ALBUTEROL /00139501/ [Concomitant]
  7. BENZTROPINE [Concomitant]
  8. BACLOFEN [Concomitant]
  9. OMEPRAZOLE [Concomitant]
  10. DURAGESIC /00174601/ [Concomitant]
  11. LORAZEPAM [Concomitant]

REACTIONS (21)
  - Cough [None]
  - Sputum discoloured [None]
  - Pyrexia [None]
  - Lethargy [None]
  - Oxygen saturation decreased [None]
  - Blood albumin decreased [None]
  - Blood urea increased [None]
  - Blood glucose increased [None]
  - Anaemia [None]
  - Bone marrow disorder [None]
  - Infection [None]
  - Lymphadenopathy [None]
  - Lung infiltration [None]
  - Splenic lesion [None]
  - Pleural effusion [None]
  - Splenic cyst [None]
  - Hypokalaemia [None]
  - Hypernatraemia [None]
  - Hypovolaemia [None]
  - Ammonia increased [None]
  - Lung disorder [None]
